FAERS Safety Report 9846535 (Version 1)
Quarter: 2014Q1

REPORT INFORMATION
  Report Type: Spontaneous
  Country: IT (occurrence: IT)
  Receive Date: 20140127
  Receipt Date: 20140127
  Transmission Date: 20141002
  Serious: Yes (Other)
  Sender: FDA-Public Use
  Company Number: IT-BAYER-2014-013599

PATIENT
  Age: 30 Year
  Sex: Female

DRUGS (4)
  1. ACETYLSALICYLIC ACID({=100 MG) [Suspect]
     Indication: PROPHYLAXIS
  2. INSULIN [Concomitant]
     Indication: TYPE 1 DIABETES MELLITUS
  3. DOXAZOSIN [Concomitant]
     Indication: HYPERTENSION
  4. LEVOTHYROXINE [Concomitant]

REACTIONS (4)
  - Exposure during pregnancy [None]
  - Proteinuria [None]
  - Hypertension [None]
  - Premature labour [None]
